FAERS Safety Report 4406223-X (Version None)
Quarter: 2004Q3

REPORT INFORMATION
  Report Type: 
  Country: None (occurrence: None)
  Receive Date: 20040723
  Receipt Date: 20040514
  Transmission Date: 20050211
  Serious: Yes (Hospitalization, Other)
  Sender: FDA-Public Use
  Company Number: US-GLAXOSMITHKLINE-A0511882A

PATIENT
  Sex: Male

DRUGS (9)
  1. AVANDIA [Suspect]
     Dates: start: 20000101, end: 20020101
  2. AMARYL [Concomitant]
  3. ACTOS [Concomitant]
  4. ZESTRIL [Concomitant]
  5. KCL TAB [Concomitant]
  6. TRENTAL [Concomitant]
  7. COUMADIN [Concomitant]
  8. NITROPATCH [Concomitant]
  9. LIPITOR [Concomitant]

REACTIONS (1)
  - CARDIAC FAILURE CONGESTIVE [None]
